FAERS Safety Report 15220714 (Version 1)
Quarter: 2018Q3

REPORT INFORMATION
  Report Type: Spontaneous
  Country: US (occurrence: US)
  Receive Date: 20180731
  Receipt Date: 20180731
  Transmission Date: 20181010
  Serious: No
  Sender: FDA-Public Use
  Company Number: US-TEVA-2018-US-935011

PATIENT
  Age: 66 Year
  Sex: Female

DRUGS (9)
  1. FLUTICASON [Concomitant]
     Active Substance: FLUTICASONE
     Route: 065
  2. ATORVASTATIN [Concomitant]
     Active Substance: ATORVASTATIN
     Route: 065
  3. DEXAMETHASON [Concomitant]
     Active Substance: DEXAMETHASONE
     Route: 065
  4. MODAFINIL. [Concomitant]
     Active Substance: MODAFINIL
     Route: 065
  5. TORSEMIDE. [Concomitant]
     Active Substance: TORSEMIDE
     Route: 065
  6. DESOXIMETAS [Concomitant]
     Route: 065
  7. METOPROLOL. [Concomitant]
     Active Substance: METOPROLOL
     Route: 065
  8. POT CL MICRO [Concomitant]
     Route: 065
  9. COPAXONE [Suspect]
     Active Substance: GLATIRAMER ACETATE
     Indication: MULTIPLE SCLEROSIS
     Route: 058
     Dates: start: 20180501

REACTIONS (1)
  - Injection site pain [Not Recovered/Not Resolved]
